FAERS Safety Report 11231581 (Version 1)
Quarter: 2015Q2

REPORT INFORMATION
  Report Type: Spontaneous
  Country: US (occurrence: None)
  Receive Date: 20150629
  Receipt Date: 20150629
  Transmission Date: 20150821
  Serious: No
  Sender: FDA-Public Use
  Company Number: None

PATIENT
  Age: 20 Year
  Sex: Female
  Weight: 63.5 kg

DRUGS (2)
  1. OMEPRAZOLE 40 MG [Suspect]
     Active Substance: OMEPRAZOLE
     Dosage: ONE PILL
     Route: 048
     Dates: start: 20150622, end: 20150628
  2. OMEPRAZOLE 40 MG [Suspect]
     Active Substance: OMEPRAZOLE
     Indication: GASTRITIS
     Dosage: ONE PILL
     Route: 048
     Dates: start: 20150622, end: 20150628

REACTIONS (2)
  - Hallucination, auditory [None]
  - Hallucination [None]

NARRATIVE: CASE EVENT DATE: 20150627
